FAERS Safety Report 9767875 (Version 1)
Quarter: 2013Q3

REPORT INFORMATION
  Report Type: Spontaneous
  Country: NL (occurrence: None)
  Receive Date: 20130827
  Receipt Date: 20130827
  Transmission Date: 20140515
  Serious: Yes (Life-Threatening, Hospitalization)
  Sender: FDA-Public Use
  Company Number: 114-C4047-13073665

PATIENT
  Age: 73 Year
  Sex: Male
  Weight: 93 kg

DRUGS (13)
  1. CC-4047 [Suspect]
     Indication: PLASMA CELL MYELOMA
     Dosage: 4 MG, 21 IN 28 D, PO
     Dates: start: 20130702, end: 20130722
  2. DEXAMETHASONE (DEXAMETHASONE) [Suspect]
     Indication: PLASMA CELL MYELOMA
     Dates: start: 20130702
  3. FLUCONAZOLE (FLUCONAZOLE) [Concomitant]
  4. CALCIUM CARBONATE (CALCIUM CARBONATE) [Concomitant]
  5. ALENDRONIC ACID (ALENDRONIC ACID) [Concomitant]
  6. VALACICLOVIR (VALACICLOVIR) [Concomitant]
  7. ACENOCOUMAROL (ACENOCOUMAROL) [Concomitant]
  8. OXYCODON (OXYCODONE HYDROCHLORIDE) [Concomitant]
  9. FUROSEMIDE (FUROSEMIDE) [Concomitant]
  10. PREDNISONE (PREDNISONE) [Concomitant]
  11. PRIMPERAN (METOCLOPRAMIDE) [Concomitant]
  12. OMEPRAZOLE (OMEPRAZOLE) [Concomitant]
  13. ZOLEDRONIC ACID (ZOLEDRONIC ACID) [Concomitant]

REACTIONS (7)
  - Neuropathy peripheral [None]
  - Enterococcal sepsis [None]
  - Pseudomonal sepsis [None]
  - Septic shock [None]
  - Multi-organ failure [None]
  - Ecthyma [None]
  - Urinary tract infection [None]
